FAERS Safety Report 15784735 (Version 1)
Quarter: 2019Q1

REPORT INFORMATION
  Report Type: Spontaneous
  Country: US (occurrence: US)
  Receive Date: 20190103
  Receipt Date: 20190103
  Transmission Date: 20190417
  Serious: Yes (Other)
  Sender: FDA-Public Use
  Company Number: US-ALKEM LABORATORIES LIMITED-US-ALKEM-2018-03264

PATIENT
  Age: 17 Year
  Sex: Female

DRUGS (6)
  1. PREDNISONE. [Suspect]
     Active Substance: PREDNISONE
     Indication: GLOMERULONEPHRITIS PROLIFERATIVE
     Dosage: HIGH-DOSE STEROIDS
     Route: 065
  2. PREDNISONE. [Suspect]
     Active Substance: PREDNISONE
     Dosage: 30 MG, TAPERED TO 30 MG EVERY OTHER DAY
     Route: 065
  3. MYCOPHENOLATE MOFETIL. [Suspect]
     Active Substance: MYCOPHENOLATE MOFETIL
     Indication: GLOMERULONEPHRITIS PROLIFERATIVE
     Dosage: 1000 MG, BID
     Route: 065
  4. PREDNISONE. [Suspect]
     Active Substance: PREDNISONE
     Dosage: 40 MG,BID
     Route: 065
  5. LISINOPRIL. [Suspect]
     Active Substance: LISINOPRIL
     Indication: GLOMERULONEPHRITIS PROLIFERATIVE
     Dosage: UNK
     Route: 065
  6. RITUXIMAB. [Concomitant]
     Active Substance: RITUXIMAB
     Indication: GLOMERULONEPHRITIS PROLIFERATIVE
     Dosage: 375 MG/M2, FOUR DOSES AT 375 MG/M^2/DOSE
     Route: 065

REACTIONS (2)
  - Bone marrow failure [Unknown]
  - Drug ineffective [Unknown]
